FAERS Safety Report 5586481-9 (Version None)
Quarter: 2007Q4

REPORT INFORMATION
  Report Type: 
  Country: None (occurrence: None)
  Receive Date: 20071205
  Receipt Date: 20061023
  Transmission Date: 20080405
  Serious: Yes (Other)
  Sender: FDA-Public Use
  Company Number: HQWYE567425OCT06

PATIENT
  Sex: Female

DRUGS (3)
  1. EFFEXOR XR [Suspect]
     Indication: ANXIETY
  2. EFFEXOR XR [Suspect]
     Indication: DEPRESSION
  3. RITALIN [Concomitant]

REACTIONS (1)
  - SENSATION OF FOREIGN BODY [None]
